FAERS Safety Report 13586050 (Version 3)
Quarter: 2017Q3

REPORT INFORMATION
  Report Type: Spontaneous
  Country: US (occurrence: US)
  Receive Date: 20170526
  Receipt Date: 20170801
  Transmission Date: 20171127
  Serious: Yes (Hospitalization, Other)
  Sender: FDA-Public Use
  Company Number: US-SAOL THERAPEUTICS-2017SAO00849

PATIENT
  Age: 50 Year
  Sex: Female

DRUGS (10)
  1. FENTANYL. [Suspect]
     Active Substance: FENTANYL
     Dosage: 41.72 ?G, \DAY
     Route: 037
  2. BACLOFEN. [Suspect]
     Active Substance: BACLOFEN
     Indication: INTERVERTEBRAL DISC DEGENERATION
  3. MORPHINE [Suspect]
     Active Substance: MORPHINE
     Dosage: 1668.8 ?G/ML, \DAY
  4. BACLOFEN. [Suspect]
     Active Substance: BACLOFEN
     Indication: PAIN
     Dosage: 83.44 ?G, \DAY
     Route: 037
  5. CLONIDINE. [Suspect]
     Active Substance: CLONIDINE
  6. FENTANYL. [Suspect]
     Active Substance: FENTANYL
     Dosage: 50 ?G, \DAY
     Route: 037
  7. MORPHINE [Suspect]
     Active Substance: MORPHINE
     Dosage: 4172 ?G, \DAY
     Route: 037
  8. BACLOFEN. [Suspect]
     Active Substance: BACLOFEN
     Indication: INTERVERTEBRAL DISC DEGENERATION
  9. BACLOFEN. [Suspect]
     Active Substance: BACLOFEN
     Indication: PAIN
     Dosage: 110 ?G, \DAY
     Route: 037
     Dates: end: 20170505
  10. FENTANYL. [Suspect]
     Active Substance: FENTANYL
     Dosage: 1668.8 ?G, \DAY
     Route: 037

REACTIONS (7)
  - Infection [Unknown]
  - Depressed level of consciousness [Unknown]
  - Overdose [Not Recovered/Not Resolved]
  - Metabolic encephalopathy [Unknown]
  - Unresponsive to stimuli [Unknown]
  - Mental status changes [Not Recovered/Not Resolved]
  - Off label use [Unknown]

NARRATIVE: CASE EVENT DATE: 20170501
